FAERS Safety Report 5313237-4 (Version None)
Quarter: 2007Q2

REPORT INFORMATION
  Report Type: 
  Country: None (occurrence: None)
  Receive Date: 20070501
  Receipt Date: 20070419
  Transmission Date: 20071010
  Serious: Yes (Other)
  Sender: FDA-Public Use
  Company Number: PHRM2007FR01335

PATIENT
  Sex: Female

DRUGS (1)
  1. GLEEVEC [Suspect]
     Indication: CHRONIC MYELOID LEUKAEMIA
     Route: 048
     Dates: start: 20050930

REACTIONS (5)
  - BLISTER [None]
  - EYELID OEDEMA [None]
  - IMPAIRED HEALING [None]
  - INFLAMMATION [None]
  - SKIN ULCER [None]
